FAERS Safety Report 5204313-5 (Version None)
Quarter: 2007Q1

REPORT INFORMATION
  Report Type: 
  Country: None (occurrence: None)
  Receive Date: 20070110
  Receipt Date: 20060207
  Transmission Date: 20070707
  Serious: No
  Sender: FDA-Public Use
  Company Number: US-BRISTOL-MYERS SQUIBB COMPANY-13277462

PATIENT

DRUGS (2)
  1. ABILIFY [Suspect]
  2. ROBITUSSIN DM [Interacting]

REACTIONS (2)
  - DRUG INTERACTION [None]
  - DYSTONIA [None]
